FAERS Safety Report 22660585 (Version 3)
Quarter: 2023Q4

REPORT INFORMATION
  Report Type: Spontaneous
  Country: FR (occurrence: FR)
  Receive Date: 20230630
  Receipt Date: 20231005
  Transmission Date: 20240110
  Serious: Yes (Death)
  Sender: FDA-Public Use
  Company Number: FR-JNJFOC-20230662476

PATIENT
  Sex: Male
  Weight: 76 kg

DRUGS (1)
  1. TECVAYLI [Suspect]
     Active Substance: TECLISTAMAB-CQYV
     Indication: Plasma cell myeloma
     Route: 065

REACTIONS (1)
  - Death [Fatal]
